FAERS Safety Report 11503771 (Version 1)
Quarter: 2015Q3

REPORT INFORMATION
  Report Type: Spontaneous
  Country: US (occurrence: US)
  Receive Date: 20150914
  Receipt Date: 20150914
  Transmission Date: 20151125
  Serious: No
  Sender: FDA-Public Use
  Company Number: GXBR2015US001823

PATIENT
  Age: 69 Year
  Sex: Male
  Weight: 55.78 kg

DRUGS (6)
  1. OMEPRAZOLE DELAYED RELEASE [Suspect]
     Active Substance: OMEPRAZOLE
     Indication: GASTROOESOPHAGEAL REFLUX DISEASE
     Dosage: 40 MG, QD
     Route: 048
     Dates: start: 20150804
  2. TYLENOL [Concomitant]
     Active Substance: ACETAMINOPHEN
     Dosage: UNK DF, UNK
  3. PROBIOTICS NOS [Concomitant]
     Active Substance: PROBIOTICS NOS
     Dosage: UNK DF, UNK
  4. ASPIRIN. [Concomitant]
     Active Substance: ASPIRIN
     Dosage: 81 MG, UNK
  5. GLUCOSE [Concomitant]
     Active Substance: DEXTROSE
     Dosage: 1/2 DF, QOD
  6. MULTI-VIT [Concomitant]
     Active Substance: VITAMINS
     Dosage: UNK DF, UNK

REACTIONS (6)
  - Chromaturia [Recovered/Resolved]
  - Muscle twitching [Recovered/Resolved]
  - Faeces hard [Unknown]
  - Faeces discoloured [Unknown]
  - Urine abnormality [Recovered/Resolved]
  - Constipation [Recovering/Resolving]

NARRATIVE: CASE EVENT DATE: 20150804
